FAERS Safety Report 5375416-X (Version None)
Quarter: 2007Q2

REPORT INFORMATION
  Report Type: 
  Country: None (occurrence: None)
  Receive Date: 20070629
  Receipt Date: 20070620
  Transmission Date: 20071010
  Serious: Yes (Death)
  Sender: FDA-Public Use
  Company Number: US-GENENTECH-242285

PATIENT
  Sex: Male
  Weight: 37.982 kg

DRUGS (12)
  1. BEVACIZUMAB [Suspect]
     Indication: NON-SMALL CELL LUNG CANCER
     Dosage: 689 MG, Q3W
     Route: 042
     Dates: start: 20070413
  2. TAXOL [Concomitant]
     Indication: NON-SMALL CELL LUNG CANCER
     Dosage: 284 MG, Q3W
     Route: 042
     Dates: start: 20070413
  3. CARBOPLATIN [Concomitant]
     Indication: NON-SMALL CELL LUNG CANCER
     Dosage: 453.6 MG, Q3W
     Route: 042
     Dates: start: 20070413
  4. FOLIC ACID [Concomitant]
     Indication: DRUG USE FOR UNKNOWN INDICATION
     Dosage: 1 MG, QD
  5. THIAMINE [Concomitant]
     Indication: DRUG USE FOR UNKNOWN INDICATION
     Dosage: 100 MG, QD
  6. PRILOSEC [Concomitant]
     Indication: DRUG USE FOR UNKNOWN INDICATION
     Dosage: 20 MG, QD
  7. MORPHINE SULPHATE SLOW RELEASE [Concomitant]
     Indication: DRUG USE FOR UNKNOWN INDICATION
     Dosage: 45 MG, QAM
  8. MORPHINE SULPHATE SLOW RELEASE [Concomitant]
     Dosage: 60 MG, QHS
  9. KEPPRA [Concomitant]
     Indication: DRUG USE FOR UNKNOWN INDICATION
     Dosage: 500 MG, BID
  10. ANTIEMETIC NOS [Concomitant]
     Indication: DRUG USE FOR UNKNOWN INDICATION
     Dosage: UNK, PRN
  11. DECADRON [Concomitant]
     Indication: DRUG USE FOR UNKNOWN INDICATION
     Dosage: 4 MG, QD
  12. TRAZODONE HCL [Concomitant]
     Indication: DRUG USE FOR UNKNOWN INDICATION
     Dosage: 50 MG, QHS

REACTIONS (1)
  - DEATH [None]
